FAERS Safety Report 6555704-1 (Version None)
Quarter: 2010Q1

REPORT INFORMATION
  Report Type: 
  Country: None (occurrence: None)
  Receive Date: 20100125
  Receipt Date: 20100108
  Transmission Date: 20100710
  Serious: Yes (Other)
  Sender: FDA-Public Use
  Company Number: 09-AUR-10262

PATIENT
  Age: 14 Year
  Sex: Female
  Weight: 55 kg

DRUGS (1)
  1. METFORMIN HCL [Suspect]
     Dosage: 500MG,ORAL
     Route: 048
     Dates: start: 20090406, end: 20090424

REACTIONS (2)
  - LACTIC ACIDOSIS [None]
  - MUSCLE SPASMS [None]
